FAERS Safety Report 7519614-5 (Version None)
Quarter: 2011Q2

REPORT INFORMATION
  Report Type: 
  Country: None (occurrence: None)
  Receive Date: 20110602
  Receipt Date: 20110225
  Transmission Date: 20111010
  Serious: Yes (Other)
  Sender: FDA-Public Use
  Company Number: A0916625A

PATIENT
  Age: 48 Year
  Sex: Female

DRUGS (1)
  1. TYKERB [Suspect]
     Dosage: 750MG PER DAY
     Dates: start: 20110130

REACTIONS (4)
  - SPEECH DISORDER [None]
  - CEREBROVASCULAR ACCIDENT [None]
  - DIARRHOEA [None]
  - WEIGHT DECREASED [None]
